FAERS Safety Report 7340490-8 (Version None)
Quarter: 2011Q1

REPORT INFORMATION
  Report Type: 
  Country: None (occurrence: None)
  Receive Date: 20110309
  Receipt Date: 20110228
  Transmission Date: 20110831
  Serious: Yes (Hospitalization)
  Sender: FDA-Public Use
  Company Number: JP-PFIZER INC-2011047966

PATIENT
  Age: 59 Year
  Sex: Male

DRUGS (8)
  1. IMPROMEN [Suspect]
     Indication: NEUROSIS
     Dosage: UNK
     Route: 048
  2. NOVASTAN [Suspect]
     Dosage: 10 MG, 2X/DAY
     Route: 041
     Dates: start: 20110213, end: 20110215
  3. PYRETHIA [Suspect]
     Indication: NEUROSIS
     Route: 048
  4. RADICUT [Suspect]
     Indication: BRAIN STEM INFARCTION
     Dosage: 30 MG, 2X/DAY
     Route: 041
     Dates: start: 20110210, end: 20110215
  5. PLAVIX [Suspect]
     Indication: BRAIN STEM INFARCTION
     Dosage: 75 MG, 1X/DAY
     Route: 048
     Dates: start: 20110211, end: 20110215
  6. NOVASTAN [Suspect]
     Indication: BRAIN STEM INFARCTION
     Dosage: 60 MG, 1X/DAY
     Route: 041
     Dates: start: 20110210, end: 20110212
  7. MEVALOTIN [Suspect]
     Indication: HYPERLIPIDAEMIA
     Dosage: 5 MG, 1X/DAY
     Route: 048
     Dates: start: 20110212, end: 20110215
  8. TAKEPRON [Concomitant]
     Indication: PROPHYLAXIS AGAINST GASTROINTESTINAL ULCER
     Dosage: 15 MG, 1X/DAY
     Route: 048
     Dates: start: 20110213

REACTIONS (3)
  - BLOOD BILIRUBIN INCREASED [None]
  - C-REACTIVE PROTEIN INCREASED [None]
  - HEPATIC FUNCTION ABNORMAL [None]
